FAERS Safety Report 4777245-4 (Version None)
Quarter: 2005Q3

REPORT INFORMATION
  Report Type: 
  Country: None (occurrence: None)
  Receive Date: 20050915
  Receipt Date: 20050908
  Transmission Date: 20060218
  Serious: Yes (Other)
  Sender: FDA-Public Use
  Company Number: 2005108339

PATIENT
  Age: 57 Year
  Sex: Female
  Weight: 83.0083 kg

DRUGS (2)
  1. LIPITOR [Suspect]
     Indication: ILL-DEFINED DISORDER
  2. FEMARA [Suspect]
     Indication: BREAST CANCER
     Dates: end: 20050101

REACTIONS (2)
  - BREAST CANCER FEMALE [None]
  - PLATELET COUNT DECREASED [None]
